FAERS Safety Report 20502850 (Version 1)
Quarter: 2022Q1

REPORT INFORMATION
  Report Type: Spontaneous
  Country: US (occurrence: None)
  Receive Date: 20220222
  Receipt Date: 20220222
  Transmission Date: 20220423
  Serious: Yes (Hospitalization)
  Sender: FDA-Public Use
  Company Number: None

PATIENT
  Sex: Male

DRUGS (2)
  1. ATOVAQUONE [Suspect]
     Active Substance: ATOVAQUONE
     Indication: Malaise
     Dosage: 10ML ONCE DAILY ORAL
     Route: 048
     Dates: start: 20220129
  2. ATOVAQUONE [Concomitant]
     Active Substance: ATOVAQUONE

REACTIONS (2)
  - Erythema [None]
  - Rash macular [None]
